FAERS Safety Report 15798217 (Version 1)
Quarter: 2019Q1

REPORT INFORMATION
  Report Type: Spontaneous
  Country: SE (occurrence: SE)
  Receive Date: 20190108
  Receipt Date: 20190108
  Transmission Date: 20190417
  Serious: Yes (Hospitalization, Other)
  Sender: FDA-Public Use
  Company Number: SE-PFIZER INC-2019005965

PATIENT
  Age: 68 Year
  Sex: Male

DRUGS (8)
  1. QUESTRAN LOC [Concomitant]
     Dosage: 16 MG, 1X/DAY (4.0 G 1X4TV)
     Dates: start: 20171024
  2. DALACIN [Suspect]
     Active Substance: CLINDAMYCIN
     Indication: INFECTION PROPHYLAXIS
     Dosage: UNK (150.0 MG/ML EO)
     Dates: start: 20181118, end: 20181130
  3. DALACIN [Suspect]
     Active Substance: CLINDAMYCIN
     Dosage: 104 ML, UNK (150.0 MG/ML 104 ML EVERY 8T TV)
     Dates: start: 20181121, end: 20181130
  4. CIPROFLOXACIN ACCORD [Suspect]
     Active Substance: CIPROFLOXACIN
     Indication: INFECTION PROPHYLAXIS
     Dosage: 1000 MG, 1X/DAY (500.0 MG 1X2TV)
     Dates: start: 20181121, end: 20181129
  5. TARGINIQ ER [Concomitant]
     Active Substance: NALOXONE HYDROCHLORIDE\OXYCODONE HYDROCHLORIDE
     Dosage: 4 DF, 1X/DAY (2KL06+2KL17TV)
     Dates: start: 20181201
  6. OXYNORM [Concomitant]
     Active Substance: OXYCODONE HYDROCHLORIDE
     Dosage: UNK, AS NEEDED (5.0 MG 1-2 CAPSULES VB MAX6/D I3V)
     Dates: start: 20181127
  7. IMOVANE [Concomitant]
     Active Substance: ZOPICLONE
     Dosage: 5 MG, AS NEEDED (5.0 MG 1 TABLET AT NIGHT VB)
     Dates: start: 20181119, end: 20181121
  8. TARGINIQ ER [Concomitant]
     Active Substance: NALOXONE HYDROCHLORIDE\OXYCODONE HYDROCHLORIDE
     Dosage: 2 DF, 1X/DAY
     Dates: start: 20181127, end: 20181201

REACTIONS (2)
  - Gastrointestinal haemorrhage [Recovering/Resolving]
  - Pseudomembranous colitis [Recovering/Resolving]

NARRATIVE: CASE EVENT DATE: 20181129
